FAERS Safety Report 6168572-7 (Version None)
Quarter: 2009Q2

REPORT INFORMATION
  Report Type: 
  Country: None (occurrence: None)
  Receive Date: 20090427
  Receipt Date: 20090422
  Transmission Date: 20091009
  Serious: Yes (Death, Hospitalization)
  Sender: FDA-Public Use
  Company Number: FR-BRISTOL-MYERS SQUIBB COMPANY-14598536

PATIENT
  Age: 86 Year
  Sex: Male

DRUGS (9)
  1. ORENCIA [Suspect]
     Indication: RHEUMATOID ARTHRITIS
     Dosage: 06DEC08(1ST),17JAN08(2ND),18FEB08(3RD),14MAR08(5),03MAY08(6),30MAY008(7),20OCT08(9TH),21NOV08(10TH)
     Route: 042
     Dates: start: 20071206, end: 20081121
  2. CORTANCYL [Concomitant]
  3. NEXIUM [Concomitant]
  4. KETOPROFEN [Concomitant]
  5. AMIODARONE HCL [Concomitant]
     Dosage: 1 DOSAGE FORM= HALF IN MORNING
  6. LAROXYL [Concomitant]
  7. PREVISCAN [Concomitant]
     Dosage: 1 DOASGE FORM = 1QUARTER IN THE EVENING
  8. LASIX [Concomitant]
  9. OXYGEN [Concomitant]
     Dosage: 18HR OUT OF 24HR.

REACTIONS (6)
  - ATRIAL FIBRILLATION [None]
  - DEATH [None]
  - PNEUMONIA [None]
  - PULMONARY ALVEOLAR HAEMORRHAGE [None]
  - PULMONARY FIBROSIS [None]
  - VASCULITIS [None]
